FAERS Safety Report 17444733 (Version 1)
Quarter: 2020Q1

REPORT INFORMATION
  Report Type: Spontaneous
  Country: FR (occurrence: FR)
  Receive Date: 20200221
  Receipt Date: 20200221
  Transmission Date: 20200409
  Serious: Yes (Life-Threatening)
  Sender: FDA-Public Use
  Company Number: FR-TEVA-2020-FR-1189113

PATIENT
  Age: 0 Day
  Sex: Male
  Weight: .91 kg

DRUGS (1)
  1. IBUPROFENE [Suspect]
     Active Substance: IBUPROFEN
     Indication: PRODUCT USED FOR UNKNOWN INDICATION
     Route: 064
     Dates: start: 201907, end: 201911

REACTIONS (3)
  - Foetal growth restriction [Recovering/Resolving]
  - Respiratory distress [Recovered/Resolved]
  - Premature baby [Recovered/Resolved with Sequelae]

NARRATIVE: CASE EVENT DATE: 20200106
